FAERS Safety Report 14075460 (Version 1)
Quarter: 2017Q4

REPORT INFORMATION
  Report Type: Spontaneous
  Country: DE (occurrence: DE)
  Receive Date: 20171011
  Receipt Date: 20171011
  Transmission Date: 20180321
  Serious: Yes (Life-Threatening, Hospitalization)
  Sender: FDA-Public Use
  Company Number: GXKR2017DE005048

PATIENT
  Age: 80 Year
  Sex: Female

DRUGS (1)
  1. TRIMETHOPRIM+SULFAMETHOXAZOLE+BROMHEXINE [Suspect]
     Active Substance: BROMHEXINE\SULFAMETHOXAZOLE\TRIMETHOPRIM
     Indication: PRODUCT USED FOR UNKNOWN INDICATION
     Route: 048

REACTIONS (6)
  - Dyspnoea [Unknown]
  - Nausea [Unknown]
  - Pruritus [Unknown]
  - Pulseless electrical activity [Unknown]
  - Abdominal pain upper [Unknown]
  - Malaise [Unknown]

NARRATIVE: CASE EVENT DATE: 20171003
